FAERS Safety Report 9186091 (Version 2)
Quarter: 2013Q2

REPORT INFORMATION
  Report Type: Spontaneous
  Country: US (occurrence: US)
  Receive Date: 20130325
  Receipt Date: 20130403
  Transmission Date: 20140414
  Serious: No
  Sender: FDA-Public Use
  Company Number: US-009507513-1303USA009638

PATIENT
  Sex: Female
  Weight: 63.49 kg

DRUGS (3)
  1. MIRALAX [Suspect]
     Indication: CONSTIPATION PROPHYLAXIS
     Dosage: 17G, TWICE
     Route: 048
  2. TIMOLOL [Concomitant]
     Indication: GLAUCOMA
     Dosage: UNK, UNKNOWN
  3. METOPROLOL [Concomitant]
     Indication: ATRIAL FIBRILLATION
     Dosage: UNK, UNKNOWN

REACTIONS (1)
  - Drug ineffective [Unknown]
